FAERS Safety Report 20848177 (Version 1)
Quarter: 2022Q2

REPORT INFORMATION
  Report Type: Spontaneous
  Country: US (occurrence: None)
  Receive Date: 20220518
  Receipt Date: 20220518
  Transmission Date: 20220720
  Serious: No
  Sender: FDA-Public Use
  Company Number: None

PATIENT
  Sex: Female
  Weight: 59.42 kg

DRUGS (7)
  1. NIVESTYM [Suspect]
     Active Substance: FILGRASTIM-AAFI
     Indication: Breast cancer
     Dosage: OTHER STRENGTH : 300/0.5 UG/ML;?OTHER FREQUENCY : DAYS 3,4,5,6;?
     Route: 058
     Dates: start: 202112
  2. DEXAMETHASONE [Concomitant]
     Active Substance: DEXAMETHASONE
  3. CYANOCOBALAMIN [Concomitant]
     Active Substance: CYANOCOBALAMIN
  4. LORATADINE [Concomitant]
     Active Substance: LORATADINE
  5. FLONASE [Concomitant]
     Active Substance: FLUTICASONE PROPIONATE
  6. MONTELUKAST [Concomitant]
     Active Substance: MONTELUKAST SODIUM
  7. PROCHLORPERAZINE [Concomitant]
     Active Substance: PROCHLORPERAZINE

REACTIONS (1)
  - Drug ineffective [None]
